FAERS Safety Report 6590179-8 (Version None)
Quarter: 2010Q1

REPORT INFORMATION
  Report Type: 
  Country: None (occurrence: None)
  Receive Date: 20100219
  Receipt Date: 20100211
  Transmission Date: 20100710
  Serious: Yes (Other)
  Sender: FDA-Public Use
  Company Number: US-ASTRAZENECA-2010SE03423

PATIENT
  Age: 79 Year
  Sex: Male
  Weight: 86.6 kg

DRUGS (6)
  1. SYMBICORT [Suspect]
     Indication: CHRONIC OBSTRUCTIVE PULMONARY DISEASE
     Dosage: 160/4.5 1 INHALATION BID
     Route: 055
     Dates: start: 20091001
  2. SYMBICORT [Suspect]
     Dosage: 160/4.5 2 INHALATIONS BID
     Route: 055
     Dates: start: 20100111
  3. SYMBICORT [Suspect]
     Dosage: 160/4.5 1 INHALATION BID
     Route: 055
     Dates: start: 20100122
  4. SPIRIVA [Concomitant]
  5. AMARYL [Concomitant]
  6. CARDIZEM [Concomitant]

REACTIONS (2)
  - BLOOD PRESSURE INCREASED [None]
  - PULMONARY HYPERTENSION [None]
